FAERS Safety Report 7309131-X (Version None)
Quarter: 2011Q1

REPORT INFORMATION
  Report Type: 
  Country: None (occurrence: None)
  Receive Date: 20110223
  Receipt Date: 20110215
  Transmission Date: 20110831
  Serious: Yes (Hospitalization)
  Sender: FDA-Public Use
  Company Number: GXBR2011US00716

PATIENT
  Sex: Female
  Weight: 66.667 kg

DRUGS (5)
  1. TRIAMTERENE AND HYDROCHLOROTHIAZIDE [Suspect]
     Dosage: 37.5 OF TRIAM AND 25MG HCTZ QD
     Route: 048
     Dates: start: 20110201
  2. TRIAMTERENE AND HYDROCHLOROTHIAZIDE [Suspect]
     Indication: HYPERTENSION
     Dosage: 50 MG OF TRIAM AND 25MG OF HCTZ QD
     Route: 048
     Dates: start: 20010101, end: 20110201
  3. LOVASTATIN [Concomitant]
     Indication: BLOOD CHOLESTEROL INCREASED
     Dosage: UNK
     Dates: start: 20100801
  4. ASPIRIN [Concomitant]
     Dosage: 81 MG, QD
  5. VITAMIN B-12 [Concomitant]
     Dosage: UNK

REACTIONS (5)
  - HYPOAESTHESIA ORAL [None]
  - HYPERHIDROSIS [None]
  - HYPOAESTHESIA FACIAL [None]
  - DIZZINESS [None]
  - TRANSIENT ISCHAEMIC ATTACK [None]
